FAERS Safety Report 5821191-1 (Version None)
Quarter: 2008Q3

REPORT INFORMATION
  Report Type: 
  Country: None (occurrence: None)
  Receive Date: 20080724
  Receipt Date: 20080711
  Transmission Date: 20090109
  Serious: Yes (Other)
  Sender: FDA-Public Use
  Company Number: US-BAYER-200812858BCC

PATIENT
  Age: 6 Month
  Sex: Male
  Weight: 8.618 kg

DRUGS (1)
  1. ASPIRIN [Suspect]
     Indication: PYREXIA
     Dosage: AS USED: 81 MG  UNIT DOSE: 81 MG
     Route: 048
     Dates: start: 19690501

REACTIONS (2)
  - CONVULSION [None]
  - VOMITING [None]
